FAERS Safety Report 4587962-7 (Version None)
Quarter: 2005Q1

REPORT INFORMATION
  Report Type: 
  Country: None (occurrence: None)
  Receive Date: 20050215
  Receipt Date: 20050202
  Transmission Date: 20050727
  Serious: Yes (Hospitalization)
  Sender: FDA-Public Use
  Company Number: HQWYE131004FEB05

PATIENT
  Age: 12 Month
  Sex: Male

DRUGS (4)
  1. CHILDREN'S ADVIL [Suspect]
     Dosage: 7.5 MG/KG, 3 TIMES DAILY ORAL
     Route: 048
  2. GENHEVAN B (HEPATITIS B VACCINE ) [Suspect]
     Indication: IMMUNISATION
     Dosage: IM
     Route: 030
     Dates: start: 20040524
  3. PRIORIX VACCINE (MEASLES, MUMPS AND RUBELLA VACCINE, ) [Suspect]
     Indication: IMMUNISATION
     Dosage: IM
     Route: 030
     Dates: start: 20040524
  4. PREVENAR (PNEUMOCOCCAL 7-VALENT CONJUGATE VACCINE (DIPHTHERIA CRM197 P [Concomitant]

REACTIONS (9)
  - ARTHRITIS BACTERIAL [None]
  - OEDEMA PERIPHERAL [None]
  - OSTEOMYELITIS [None]
  - PAIN [None]
  - PLATELET COUNT INCREASED [None]
  - PRURITUS [None]
  - RASH [None]
  - RED BLOOD CELL SEDIMENTATION RATE INCREASED [None]
  - WHITE BLOOD CELL COUNT INCREASED [None]
